FAERS Safety Report 7015285-5 (Version None)
Quarter: 2010Q3

REPORT INFORMATION
  Report Type: 
  Country: None (occurrence: None)
  Receive Date: 20100922
  Receipt Date: 20100908
  Transmission Date: 20110219
  Serious: Yes (Other)
  Sender: FDA-Public Use
  Company Number: 015449

PATIENT
  Sex: Female
  Weight: 51 kg

DRUGS (4)
  1. CIMZIA [Suspect]
     Indication: CROHN'S DISEASE
     Dosage: 400 MG 1X/MONTH, SUBCUTANEOUS
     Route: 058
     Dates: start: 20091118
  2. ASACOL [Concomitant]
  3. PREDNISONE [Concomitant]
  4. ACTONEL [Concomitant]

REACTIONS (7)
  - ARTHRITIS [None]
  - MENORRHAGIA [None]
  - OEDEMA PERIPHERAL [None]
  - RASH PAPULAR [None]
  - RASH PRURITIC [None]
  - SENSATION OF HEAVINESS [None]
  - SKIN ULCER [None]
